FAERS Safety Report 4683111-5 (Version None)
Quarter: 2005Q2

REPORT INFORMATION
  Report Type: 
  Country: None (occurrence: None)
  Receive Date: 20050602
  Receipt Date: 20050324
  Transmission Date: 20051028
  Serious: No
  Sender: FDA-Public Use
  Company Number: USA050394089

PATIENT
  Age: 49 Year
  Sex: Female
  Weight: 66 kg

DRUGS (8)
  1. CYMBALTA [Suspect]
     Indication: DEPRESSION
     Dosage: 30 MG DAY
     Dates: start: 20050323
  2. HYDROCHLOROTHIAZIDE [Concomitant]
  3. AVAPRO [Concomitant]
  4. LIPITOR [Concomitant]
  5. THIAZIDE [Concomitant]
  6. NITROGLYCERIN [Concomitant]
  7. ALPRAZOLAM [Concomitant]
  8. LORTAB [Concomitant]

REACTIONS (3)
  - DIARRHOEA [None]
  - MALAISE [None]
  - NAUSEA [None]
